FAERS Safety Report 8510981-2 (Version None)
Quarter: 2012Q3

REPORT INFORMATION
  Report Type: 
  Country: None (occurrence: None)
  Receive Date: 20120703
  Receipt Date: 20120622
  Transmission Date: 20120928
  Serious: Yes (Hospitalization)
  Sender: FDA-Public Use
  Company Number: 2012MA007920

PATIENT
  Age: 68 Year
  Sex: Male

DRUGS (9)
  1. AMLODIPINE [Concomitant]
  2. FLUTICASONE PROPIONATE/SALMETEROL [Concomitant]
  3. TELMISARTAN [Concomitant]
  4. PAROXETINE [Concomitant]
  5. ASPIRIN [Concomitant]
  6. METFORMIN HYDROCHLORIDE [Concomitant]
  7. FUROSEMIDE [Concomitant]
  8. ATORVASTATIN [Concomitant]
  9. DOXAZOSIN MESYLATE [Suspect]
     Indication: HYPERTENSION
     Dosage: 4 MG;QD;PO
     Route: 048
     Dates: start: 20120522, end: 20120525

REACTIONS (3)
  - TREATMENT NONCOMPLIANCE [None]
  - INCORRECT DOSE ADMINISTERED [None]
  - PRESYNCOPE [None]
